FAERS Safety Report 24779164 (Version 2)
Quarter: 2024Q4

REPORT INFORMATION
  Report Type: Spontaneous
  Country: ES (occurrence: ES)
  Receive Date: 20241226
  Receipt Date: 20241227
  Transmission Date: 20250114
  Serious: Yes (Death, Hospitalization, Other)
  Sender: MYLAN
  Company Number: ES-MYLANLABS-2024M1114688

PATIENT
  Sex: Male

DRUGS (15)
  1. CISPLATIN [Suspect]
     Active Substance: CISPLATIN
     Indication: Diffuse large B-cell lymphoma stage II
     Dosage: UNK
     Route: 065
  2. GEMCITABINE [Suspect]
     Active Substance: GEMCITABINE
     Indication: Diffuse large B-cell lymphoma stage II
     Dosage: UNK
     Route: 065
  3. OXALIPLATIN [Suspect]
     Active Substance: OXALIPLATIN
     Indication: Diffuse large B-cell lymphoma stage II
     Dosage: UNK
     Route: 065
  4. CYCLOPHOSPHAMIDE [Suspect]
     Active Substance: CYCLOPHOSPHAMIDE
     Indication: Diffuse large B-cell lymphoma stage II
     Dosage: UNK
     Route: 065
  5. DOXORUBICIN [Suspect]
     Active Substance: DOXORUBICIN
     Indication: Diffuse large B-cell lymphoma stage II
     Dosage: UNK
     Route: 065
  6. PREDNISONE [Suspect]
     Active Substance: PREDNISONE
     Indication: Diffuse large B-cell lymphoma stage II
     Dosage: UNK
     Route: 065
  7. RITUXIMAB [Suspect]
     Active Substance: RITUXIMAB
     Indication: Diffuse large B-cell lymphoma stage II
     Dosage: UNK
     Route: 065
  8. VINCRISTINE [Suspect]
     Active Substance: VINCRISTINE
     Indication: Diffuse large B-cell lymphoma stage II
     Dosage: UNK
     Route: 065
  9. ETOPOSIDE [Suspect]
     Active Substance: ETOPOSIDE
     Indication: Diffuse large B-cell lymphoma stage II
     Dosage: UNK
     Route: 065
  10. ETOPOSIDE [Suspect]
     Active Substance: ETOPOSIDE
     Indication: Bone marrow conditioning regimen
  11. METHYLPREDNISOLONE [Suspect]
     Active Substance: METHYLPREDNISOLONE
     Indication: Diffuse large B-cell lymphoma stage II
     Dosage: UNK
     Route: 065
  12. CYTARABINE [Suspect]
     Active Substance: CYTARABINE
     Indication: Diffuse large B-cell lymphoma stage II
     Dosage: UNK
     Route: 065
  13. CYTARABINE [Suspect]
     Active Substance: CYTARABINE
     Indication: Bone marrow conditioning regimen
  14. CARMUSTINE [Concomitant]
     Active Substance: CARMUSTINE
     Indication: Bone marrow conditioning regimen
     Dosage: UNK
     Route: 065
  15. MELPHALAN [Concomitant]
     Active Substance: MELPHALAN
     Indication: Bone marrow conditioning regimen
     Dosage: UNK
     Route: 065

REACTIONS (1)
  - Drug ineffective [Fatal]
